FAERS Safety Report 4746396-2 (Version None)
Quarter: 2005Q3

REPORT INFORMATION
  Report Type: 
  Country: None (occurrence: None)
  Receive Date: 20050815
  Receipt Date: 20050805
  Transmission Date: 20060218
  Serious: Yes (Other)
  Sender: FDA-Public Use
  Company Number: STA-AE-05-MTX-015

PATIENT
  Age: 55 Year
  Sex: Female

DRUGS (2)
  1. METHOTREXATE [Suspect]
     Indication: RHEUMATOID ARTHRITIS
     Dosage: 20 MG 1XW - ORAL
     Route: 048
     Dates: start: 20020801, end: 20030128
  2. ABATACEPT [Suspect]
     Indication: RHEUMATOID ARTHRITIS
     Dosage: 500 MG - IV
     Route: 042
     Dates: start: 20020527, end: 20050428

REACTIONS (1)
  - BREAST CANCER FEMALE [None]
